FAERS Safety Report 4305972-1 (Version None)
Quarter: 2004Q1

REPORT INFORMATION
  Report Type: 
  Country: None (occurrence: None)
  Receive Date: 20040224
  Receipt Date: 20040213
  Transmission Date: 20041129
  Serious: Yes (Disabling)
  Sender: FDA-Public Use
  Company Number: HQWYE621811APR03

PATIENT
  Age: 36 Year
  Sex: Female

DRUGS (8)
  1. DIMETAPP [Suspect]
     Indication: COUGH
     Dosage: ORAL
     Route: 048
     Dates: start: 19951101
  2. ALKA-SELTZER PLUS (ACETYLSALICYLIC ACID/CHLORPHENAMINE MALEATE/PHENYLP [Suspect]
     Indication: NASOPHARYNGITIS
     Dosage: ORAL
     Route: 048
     Dates: start: 19950101, end: 19951107
  3. ALKA-SELTZER PLUS COLD(ACETYLSALICYLIC ACID/CHLORPHENAMINE MALEATE/PHE [Suspect]
     Indication: COUGH
     Dosage: ORAL
     Route: 048
     Dates: start: 19951101
  4. ALKA-SELTZER PLUS COLD(ACETYLSALICYLIC ACID/CHLORPHENAMINE MALEATE/PHE [Suspect]
     Indication: NASOPHARYNGITIS
     Dosage: ORAL
     Route: 048
     Dates: start: 19951101
  5. DEXATRIM (CAFFEINE/PHENYLPROPANOLAMINE HYDROCHLORIDE, ) [Suspect]
     Indication: WEIGHT CONTROL
     Dosage: ORAL
     Route: 048
     Dates: start: 19950101, end: 19951107
  6. DIMETAPP (BORMPHENIRAMINE/PHENYLPROPANOLAMINE, ELIXIR) [Suspect]
     Indication: NASOPHARYNGITIS
     Dosage: ORAL
     Route: 048
     Dates: start: 19950101, end: 19951107
  7. TRIAMINIC-12 [Suspect]
     Indication: COUGH
     Dosage: ORAL
     Route: 048
     Dates: start: 19950101, end: 19951107
  8. TRIAMINIC-12 [Suspect]
     Indication: NASOPHARYNGITIS
     Dosage: ORAL
     Route: 048
     Dates: start: 19950101, end: 19951107

REACTIONS (4)
  - CEREBROVASCULAR ACCIDENT [None]
  - INJURY [None]
  - MENTAL DISORDER [None]
  - PAIN [None]
